FAERS Safety Report 14947512 (Version 2)
Quarter: 2018Q2

REPORT INFORMATION
  Report Type: Spontaneous
  Country: BR (occurrence: BR)
  Receive Date: 20180529
  Receipt Date: 20180621
  Transmission Date: 20180711
  Serious: No
  Sender: FDA-Public Use
  Company Number: BR-DSJP-DSU-2018-121091

PATIENT

DRUGS (1)
  1. OLMETEC HCT 20/12.5 [Suspect]
     Active Substance: HYDROCHLOROTHIAZIDE\OLMESARTAN MEDOXOMIL
     Indication: HYPERTENSION
     Dosage: 1 DF (20/12.5), QD
     Route: 065
     Dates: end: 2015

REACTIONS (2)
  - Blood urea increased [Recovered/Resolved]
  - Blood uric acid increased [Recovered/Resolved]
